FAERS Safety Report 11489459 (Version 1)
Quarter: 2015Q3

REPORT INFORMATION
  Report Type: Spontaneous
  Country: US (occurrence: US)
  Receive Date: 20150910
  Receipt Date: 20150910
  Transmission Date: 20151125
  Serious: No
  Sender: FDA-Public Use
  Company Number: US-ROCHE-1486418

PATIENT
  Sex: Male

DRUGS (6)
  1. GEODON (UNITED STATES) [Concomitant]
  2. LEVOTHYROXINE. [Concomitant]
     Active Substance: LEVOTHYROXINE
  3. LORAZEPAM. [Concomitant]
     Active Substance: LORAZEPAM
  4. ANASTROZOLE. [Concomitant]
     Active Substance: ANASTROZOLE
  5. PEGASYS [Suspect]
     Active Substance: PEGINTERFERON ALFA-2A
     Indication: CHRONIC HEPATITIS C
     Route: 058
     Dates: start: 20141015
  6. VITAMIN C [Concomitant]
     Active Substance: ASCORBIC ACID

REACTIONS (6)
  - Chills [Unknown]
  - Underdose [Unknown]
  - Vision blurred [Unknown]
  - Exposure via direct contact [Unknown]
  - Bone pain [Unknown]
  - Pyrexia [Unknown]
